FAERS Safety Report 6611804-9 (Version None)
Quarter: 2010Q1

REPORT INFORMATION
  Report Type: 
  Country: None (occurrence: None)
  Receive Date: 20100303
  Receipt Date: 20100224
  Transmission Date: 20100710
  Serious: Yes (Death)
  Sender: FDA-Public Use
  Company Number: US-ROCHE-687844

PATIENT
  Sex: Male
  Weight: 78.9 kg

DRUGS (1)
  1. CAPECITABINE [Suspect]
     Dosage: ROUTE: MOUTH
     Route: 048
     Dates: start: 20091216, end: 20100115

REACTIONS (1)
  - DEATH [None]
